FAERS Safety Report 5372664-X (Version None)
Quarter: 2007Q2

REPORT INFORMATION
  Report Type: 
  Country: None (occurrence: None)
  Receive Date: 20070626
  Receipt Date: 20070615
  Transmission Date: 20071010
  Serious: Yes (Hospitalization)
  Sender: FDA-Public Use
  Company Number: 2007JP002212

PATIENT
  Age: 69 Year
  Sex: Male

DRUGS (5)
  1. VESICARE [Suspect]
     Indication: HYPERTONIC BLADDER
     Dosage: 5 MG, UID/QD, ORAL
     Route: 048
     Dates: start: 20070410, end: 20070419
  2. AVISHOT(NAFTOPIDIL) TABLET [Suspect]
     Indication: BENIGN PROSTATIC HYPERPLASIA
     Dosage: 75 MG, UID/QD, ORAL
     Route: 048
     Dates: start: 20070406, end: 20070419
  3. PRAVASTATIN [Concomitant]
  4. ALLELOCK (OLOPATADINE HYDROCHLORIDE) [Concomitant]
  5. DOGMATYL [Concomitant]

REACTIONS (7)
  - ANOREXIA [None]
  - DYSGEUSIA [None]
  - IRON DEFICIENCY [None]
  - MALNUTRITION [None]
  - TONGUE DISCOLOURATION [None]
  - VITAMIN B12 DEFICIENCY [None]
  - ZINC DEFICIENCY [None]
